FAERS Safety Report 5538426-5 (Version None)
Quarter: 2007Q4

REPORT INFORMATION
  Report Type: 
  Country: None (occurrence: None)
  Receive Date: 20071205
  Receipt Date: 20071121
  Transmission Date: 20080405
  Serious: Yes (Hospitalization)
  Sender: FDA-Public Use
  Company Number: 060012L07JPN

PATIENT
  Age: 41 Year
  Sex: Female

DRUGS (2)
  1. CHORIONIC GONADTROPIN [Suspect]
  2. MENOTROPINS [Suspect]

REACTIONS (5)
  - ABORTION SPONTANEOUS [None]
  - BENIGN HYDATIDIFORM MOLE [None]
  - DRUG EXPOSURE DURING PREGNANCY [None]
  - POST PROCEDURAL HAEMORRHAGE [None]
  - PREGNANCY INDUCED HYPERTENSION [None]
